FAERS Safety Report 18441683 (Version 1)
Quarter: 2020Q4

REPORT INFORMATION
  Report Type: Spontaneous
  Country: KR (occurrence: KR)
  Receive Date: 20201029
  Receipt Date: 20201029
  Transmission Date: 20210114
  Serious: Yes (Hospitalization)
  Sender: FDA-Public Use
  Company Number: NVSC2020KR287538

PATIENT
  Age: 60 Year
  Sex: Male
  Weight: 63 kg

DRUGS (34)
  1. MYCOPHENOLIC ACID. [Concomitant]
     Active Substance: MYCOPHENOLIC ACID
     Indication: PRODUCT USED FOR UNKNOWN INDICATION
     Dosage: 4 CAPSULES, UNKNOWN
     Route: 048
     Dates: start: 20160423
  2. NYSTATIN. [Concomitant]
     Active Substance: NYSTATIN
     Indication: PRODUCT USED FOR UNKNOWN INDICATION
     Dosage: 8 ML, UNKNOWN
     Route: 048
     Dates: start: 20160424
  3. PETHIDINE [Concomitant]
     Active Substance: MEPERIDINE
     Indication: PRODUCT USED FOR UNKNOWN INDICATION
     Dosage: 4 AMPLE, UNKNOWN
     Route: 030
     Dates: start: 20160423, end: 20160428
  4. TACROLIMUS. [Concomitant]
     Active Substance: TACROLIMUS
     Dosage: 3 CAPSULE, UNKNOWN
     Route: 048
     Dates: start: 20160426, end: 20160427
  5. PREDNISOLONE. [Concomitant]
     Active Substance: PREDNISOLONE
     Indication: PRODUCT USED FOR UNKNOWN INDICATION
     Dosage: 1.5 TABLET, UNKNOWN
     Route: 048
     Dates: start: 20160425, end: 20160430
  6. SILYMARIN [Concomitant]
     Active Substance: DIETARY SUPPLEMENT\HERBALS\MILK THISTLE
     Indication: PRODUCT USED FOR UNKNOWN INDICATION
     Dosage: 3 CAPSULES, UNKNOWN
     Route: 048
     Dates: start: 20160425
  7. TACROLIMUS. [Concomitant]
     Active Substance: TACROLIMUS
     Indication: PRODUCT USED FOR UNKNOWN INDICATION
     Dosage: 6 CAPSULE, UNKNOWN
     Route: 048
     Dates: start: 20160421, end: 20160422
  8. HEPATITIS B IMMUNE GLOBULIN [Suspect]
     Active Substance: HUMAN HEPATITIS B VIRUS IMMUNE GLOBULIN
     Dosage: 10000 IU, QW
     Route: 042
     Dates: start: 20160504, end: 20160517
  9. ALBUMIN [Concomitant]
     Active Substance: ALBUMIN HUMAN
     Indication: HEPATIC CIRRHOSIS
     Dosage: 1 VIAL, UNKNOWN
     Route: 042
     Dates: start: 20160120, end: 20160427
  10. IBUPROFEN. [Concomitant]
     Active Substance: IBUPROFEN
     Indication: PRODUCT USED FOR UNKNOWN INDICATION
     Dosage: 2 TABLET, UNKNOWN
     Route: 048
     Dates: start: 20160430, end: 20160430
  11. LEVOFLOXACIN. [Concomitant]
     Active Substance: LEVOFLOXACIN
     Indication: PRODUCT USED FOR UNKNOWN INDICATION
     Dosage: 2 TABLET, UNKNOWN
     Route: 048
     Dates: start: 20160421, end: 20160510
  12. TACROLIMUS. [Concomitant]
     Active Substance: TACROLIMUS
     Dosage: 8 CAPSULE, UNKNOWN
     Route: 048
     Dates: start: 20160428
  13. FENTANYL. [Concomitant]
     Active Substance: FENTANYL
     Indication: PRODUCT USED FOR UNKNOWN INDICATION
     Dosage: UNK
     Route: 065
     Dates: start: 20160430, end: 20160509
  14. INSULIN [Concomitant]
     Active Substance: INSULIN NOS
     Indication: DIABETES MELLITUS
     Dosage: 50 IU, UNKNOWN
     Route: 058
     Dates: start: 20160421, end: 20160423
  15. IPRATROPIUM BROMIDE. [Concomitant]
     Active Substance: IPRATROPIUM BROMIDE
     Indication: PRODUCT USED FOR UNKNOWN INDICATION
     Dosage: 1.5 MG, UNKNOWN
     Route: 065
     Dates: start: 20160421, end: 20160501
  16. KETOPROFEN. [Concomitant]
     Active Substance: KETOPROFEN
     Indication: PRODUCT USED FOR UNKNOWN INDICATION
     Dosage: 7 PATCH, UNKNOWN
     Route: 065
     Dates: start: 20160420, end: 20160430
  17. PANTOPRAZOLE [Concomitant]
     Active Substance: PANTOPRAZOLE
     Indication: GASTRIC ULCER
     Dosage: 40 MG, UNKNOWN
     Route: 042
     Dates: start: 20160421, end: 20160426
  18. ACETHYL CYSTEINE [Concomitant]
     Active Substance: ACETYLCYSTEINE
     Indication: PRODUCT USED FOR UNKNOWN INDICATION
     Dosage: 2400 MG, UNKNOWN
     Route: 045
     Dates: start: 20160421, end: 20160423
  19. FUROSEMIDE. [Concomitant]
     Active Substance: FUROSEMIDE
     Indication: PRODUCT USED FOR UNKNOWN INDICATION
     Dosage: 1 AMPLE, UNKNOWN
     Route: 030
     Dates: start: 20160422, end: 20160430
  20. METHYLPREDNISOLONE. [Concomitant]
     Active Substance: METHYLPREDNISOLONE
     Indication: PRODUCT USED FOR UNKNOWN INDICATION
     Dosage: 500 MG, UNKNOWN
     Route: 042
     Dates: start: 20160421, end: 20160422
  21. RANITIDINE. [Concomitant]
     Active Substance: RANITIDINE
     Indication: PRODUCT USED FOR UNKNOWN INDICATION
     Dosage: 2 TABLET, UNKNOWN
     Route: 048
     Dates: start: 20160425, end: 20160510
  22. SIMULECT [Suspect]
     Active Substance: BASILIXIMAB
     Indication: PRODUCT USED FOR UNKNOWN INDICATION
     Dosage: 1 DF, UNKNOWN (BOTTLE)
     Route: 042
     Dates: start: 20160424, end: 20160424
  23. BISACODYL. [Concomitant]
     Active Substance: BISACODYL
     Indication: PRODUCT USED FOR UNKNOWN INDICATION
     Dosage: 1 TABLET, UNKNOWN
     Route: 065
     Dates: start: 20160425, end: 20160429
  24. SUCRALFATE. [Concomitant]
     Active Substance: SUCRALFATE
     Indication: GASTRIC ULCER
     Dosage: 60 ML, UNKNOWN
     Route: 048
     Dates: start: 20160421, end: 20160510
  25. TACROLIMUS. [Concomitant]
     Active Substance: TACROLIMUS
     Dosage: 4 CAPSULE, UNKNOWN
     Route: 048
     Dates: start: 20160425, end: 20160426
  26. ACETYLSALICYLIC ACID [Concomitant]
     Active Substance: ASPIRIN
     Indication: PRODUCT USED FOR UNKNOWN INDICATION
     Dosage: 1 CAPSULE, UNKNOWN
     Route: 048
     Dates: start: 20160425
  27. ALBUMIN [Concomitant]
     Active Substance: ALBUMIN HUMAN
     Dosage: 250 ML, UNKNOWN
     Route: 042
     Dates: start: 20160421, end: 20160425
  28. ISPAGHULA [Concomitant]
     Active Substance: PLANTAGO OVATA SEED
     Indication: PRODUCT USED FOR UNKNOWN INDICATION
     Dosage: 16 G, UNKNOWN
     Route: 048
     Dates: start: 20160430
  29. SULFAMETHOXAZOLE AND TRIMETHOPRIM [Concomitant]
     Active Substance: SULFAMETHOXAZOLE\TRIMETHOPRIM
     Indication: PRODUCT USED FOR UNKNOWN INDICATION
     Dosage: 2 TABLET, UNKNOWN
     Route: 048
     Dates: start: 20160429
  30. TRAMADOL. [Concomitant]
     Active Substance: TRAMADOL
     Indication: PRODUCT USED FOR UNKNOWN INDICATION
     Dosage: 2 AMPLE, UNKNOWN
     Route: 042
     Dates: start: 20160424, end: 20160508
  31. HEPATITIS B IMMUNE GLOBULIN [Suspect]
     Active Substance: HUMAN HEPATITIS B VIRUS IMMUNE GLOBULIN
     Indication: PRODUCT USED FOR UNKNOWN INDICATION
     Dosage: 20000 IU, QD
     Route: 042
     Dates: start: 20160420, end: 20160427
  32. CEFTIZOXIME [Concomitant]
     Active Substance: CEFTIZOXIME
     Indication: PRODUCT USED FOR UNKNOWN INDICATION
     Dosage: 3 VIAL, UNKNOWN
     Route: 042
     Dates: start: 20160421, end: 20160426
  33. ENTECAVIR. [Concomitant]
     Active Substance: ENTECAVIR
     Indication: PRODUCT USED FOR UNKNOWN INDICATION
     Dosage: 1 TABLET, UNKNOWN
     Route: 048
     Dates: start: 20160428
  34. URSODEOXYCHOLIC ACID [Concomitant]
     Active Substance: URSODIOL
     Indication: PRODUCT USED FOR UNKNOWN INDICATION
     Dosage: 3 TABLET, UNKNOWN
     Route: 048
     Dates: start: 20160425

REACTIONS (1)
  - Liver function test abnormal [Recovered/Resolved]

NARRATIVE: CASE EVENT DATE: 20160601
